FAERS Safety Report 19910765 (Version 3)
Quarter: 2021Q4

REPORT INFORMATION
  Report Type: Spontaneous
  Country: US (occurrence: US)
  Receive Date: 20211004
  Receipt Date: 20211108
  Transmission Date: 20220303
  Serious: No
  Sender: FDA-Public Use
  Company Number: US-TEVA-2021-US-1958663

PATIENT
  Age: 69 Year
  Sex: Female

DRUGS (6)
  1. AUSTEDO [Suspect]
     Active Substance: DEUTETRABENAZINE
     Indication: Tardive dyskinesia
     Dosage: 24 MILLIGRAM DAILY;
     Route: 048
     Dates: start: 202104
  2. GABAPENTIN [Concomitant]
     Active Substance: GABAPENTIN
  3. DULOXETINE [Concomitant]
     Active Substance: DULOXETINE
  4. ARMOUR THYROID [Concomitant]
     Active Substance: THYROID, PORCINE
  5. CHLORDIAZEPOXIDE [Concomitant]
     Active Substance: CHLORDIAZEPOXIDE
  6. NALTREXONE [Concomitant]
     Active Substance: NALTREXONE

REACTIONS (3)
  - Fatigue [Unknown]
  - Gait disturbance [Unknown]
  - Insomnia [Unknown]

NARRATIVE: CASE EVENT DATE: 20210101
